FAERS Safety Report 8835599 (Version 2)
Quarter: 2012Q4

REPORT INFORMATION
  Report Type: 
  Country: AT (occurrence: AT)
  Receive Date: 20121011
  Receipt Date: 20121029
  Transmission Date: 20130627
  Serious: Yes (Hospitalization)
  Sender: FDA-Public Use
  Company Number: AT-ACTELION-A-CH2012-72440

PATIENT
  Age: 56 Year
  Sex: Female

DRUGS (12)
  1. TRACLEER [Suspect]
     Indication: PULMONARY ARTERIAL HYPERTENSION
     Dosage: 250 mg, bid
     Route: 048
  2. TRACLEER [Suspect]
     Dosage: 125 mg, bid
     Route: 048
  3. TRACLEER [Suspect]
     Dosage: UNK
     Route: 048
  4. CIALIS [Concomitant]
  5. TREPROSTINIL [Concomitant]
  6. LISINOPRIL [Concomitant]
  7. NOMEXOR [Concomitant]
  8. DIGIMERCK [Concomitant]
  9. MARCOUMAR [Concomitant]
  10. GLIVEC [Suspect]
     Dosage: UNK
     Dates: end: 20120809
  11. SPIROBENE [Concomitant]
  12. AMLODIPIN [Concomitant]

REACTIONS (8)
  - Transaminases increased [Recovered/Resolved]
  - Aspartate aminotransferase increased [Recovered/Resolved]
  - Alanine aminotransferase increased [Recovered/Resolved]
  - Gamma-glutamyltransferase increased [Recovered/Resolved]
  - Pancreatic enzymes increased [Recovered/Resolved]
  - Weight decreased [Unknown]
  - Amylase increased [Recovered/Resolved]
  - Lipase increased [Recovered/Resolved]
